FAERS Safety Report 6093299-X (Version None)
Quarter: 2009Q1

REPORT INFORMATION
  Report Type: 
  Country: None (occurrence: None)
  Receive Date: 20090226
  Receipt Date: 20090218
  Transmission Date: 20090719
  Serious: Yes (Hospitalization, Other)
  Sender: FDA-Public Use
  Company Number: US-AMGEN-QUU332793

PATIENT
  Sex: Male
  Weight: 128.9 kg

DRUGS (8)
  1. ENBREL [Suspect]
     Indication: PSORIATIC ARTHROPATHY
     Route: 058
     Dates: start: 20021119
  2. FISH OIL [Concomitant]
  3. LIPITOR [Concomitant]
  4. VITAMIN D [Concomitant]
  5. ZETIA [Concomitant]
  6. LISINOPRIL [Concomitant]
  7. MULTIVITAMIN [Concomitant]
  8. FOLIC ACID [Concomitant]

REACTIONS (14)
  - ARTHRALGIA [None]
  - CORONARY ARTERY OCCLUSION [None]
  - DEAFNESS NEUROSENSORY [None]
  - DERMATITIS CONTACT [None]
  - ECZEMA [None]
  - ENZYME ABNORMALITY [None]
  - ESSENTIAL HYPERTENSION [None]
  - MENIERE'S DISEASE [None]
  - MIXED HYPERLIPIDAEMIA [None]
  - POLYARTHRITIS [None]
  - SLEEP APNOEA SYNDROME [None]
  - SYNOVITIS [None]
  - TENOSYNOVITIS [None]
  - TYPE 2 DIABETES MELLITUS [None]
